FAERS Safety Report 8990637 (Version 1)
Quarter: 2012Q4

REPORT INFORMATION
  Report Type: 
  Country: FR (occurrence: FR)
  Receive Date: 20121228
  Receipt Date: 20121228
  Transmission Date: 20130627
  Serious: Yes (Hospitalization)
  Sender: FDA-Public Use
  Company Number: FR-B.I. PHARMACEUTICALS,INC./RIDGEFIELD-2012-FF-02047FF

PATIENT
  Age: 54 Year
  Sex: Female

DRUGS (4)
  1. TWYNSTA [Suspect]
     Route: 048
  2. ALDACTAZINE [Suspect]
     Route: 048
  3. SECTRAL [Suspect]
     Route: 048
  4. CRESTOR [Suspect]
     Route: 048

REACTIONS (1)
  - Hyponatraemia [Not Recovered/Not Resolved]
